FAERS Safety Report 17206165 (Version 1)
Quarter: 2019Q4

REPORT INFORMATION
  Report Type: Report from Study
  Country: None (occurrence: CN)
  Receive Date: 20191227
  Receipt Date: 20191227
  Transmission Date: 20200122
  Serious: Yes (Life-Threatening, Hospitalization)
  Sender: FDA-Public Use
  Company Number: CN-CELLTRION, INC.-2078229

PATIENT
  Age: 42 Year
  Sex: Female
  Weight: 59 kg

DRUGS (6)
  1. METACORTANDRACIN [Concomitant]
  2. MELOXICAM. [Concomitant]
     Active Substance: MELOXICAM
  3. METHOTREXATE. [Concomitant]
     Active Substance: METHOTREXATE
  4. TRUXIMA [Suspect]
     Active Substance: RITUXIMAB-ABBS
  5. FOLIC ACID. [Concomitant]
     Active Substance: FOLIC ACID
  6. ALFACALCIDOL [Concomitant]
     Active Substance: ALFACALCIDOL

REACTIONS (1)
  - Anaphylactic shock [Recovered/Resolved]

NARRATIVE: CASE EVENT DATE: 20191105
